FAERS Safety Report 7650792-3 (Version None)
Quarter: 2011Q3

REPORT INFORMATION
  Report Type: 
  Country: None (occurrence: None)
  Receive Date: 20110802
  Receipt Date: 20110728
  Transmission Date: 20111222
  Serious: Yes (Other)
  Sender: FDA-Public Use
  Company Number: GB-MERCK-1105GBR00049

PATIENT
  Age: 27 Year
  Sex: Male

DRUGS (1)
  1. PROPECIA [Suspect]
     Indication: ANDROGENETIC ALOPECIA
     Route: 048
     Dates: start: 20100910, end: 20110118

REACTIONS (9)
  - EMOTIONAL POVERTY [None]
  - DISTURBANCE IN ATTENTION [None]
  - DEPRESSION [None]
  - MUSCLE ATROPHY [None]
  - PENILE SIZE REDUCED [None]
  - SKIN DISCOLOURATION [None]
  - ASTHENIA [None]
  - INSOMNIA [None]
  - ERECTILE DYSFUNCTION [None]
